FAERS Safety Report 6010522-8 (Version None)
Quarter: 2008Q4

REPORT INFORMATION
  Report Type: 
  Country: None (occurrence: None)
  Receive Date: 20081216
  Receipt Date: 20081201
  Transmission Date: 20090506
  Serious: Yes (Other)
  Sender: FDA-Public Use
  Company Number: 2008S1021323

PATIENT
  Age: 76 Year
  Sex: Male

DRUGS (4)
  1. ONDANSETRON [Suspect]
     Indication: ANTIEMETIC SUPPORTIVE CARE
     Dosage: 4 MG; INTRAVENOUS
     Route: 042
     Dates: start: 20081106, end: 20081106
  2. FUROSEMIDE [Concomitant]
  3. LISINOPRIL [Concomitant]
  4. SIMVASTATIN [Concomitant]

REACTIONS (3)
  - CONVULSION [None]
  - HEADACHE [None]
  - VISUAL IMPAIRMENT [None]
